FAERS Safety Report 5492983-6 (Version None)
Quarter: 2007Q4

REPORT INFORMATION
  Report Type: 
  Country: None (occurrence: None)
  Receive Date: 20071023
  Receipt Date: 20071019
  Transmission Date: 20080405
  Serious: Yes (Other)
  Sender: FDA-Public Use
  Company Number: GB-BRISTOL-MYERS SQUIBB COMPANY-13947700

PATIENT
  Age: 74 Year
  Sex: Male

DRUGS (3)
  1. KENALOG [Suspect]
     Indication: BURSITIS
     Route: 014
     Dates: start: 20060125
  2. LIDOCAINE [Suspect]
     Indication: BURSITIS
     Route: 014
     Dates: start: 20060125
  3. TRAMADOL HCL [Concomitant]
     Route: 048

REACTIONS (3)
  - DYSPNOEA [None]
  - OEDEMA [None]
  - RASH [None]
